FAERS Safety Report 10218245 (Version 1)
Quarter: 2014Q2

REPORT INFORMATION
  Report Type: Spontaneous
  Country: AT (occurrence: AT)
  Receive Date: 20140605
  Receipt Date: 20140605
  Transmission Date: 20141212
  Serious: Yes (Hospitalization)
  Sender: FDA-Public Use
  Company Number: AT-BRISTOL-MYERS SQUIBB COMPANY-20861670

PATIENT
  Age: 7 Decade
  Sex: Male

DRUGS (2)
  1. FORXIGA [Suspect]
  2. METFORMIN HCL [Suspect]

REACTIONS (1)
  - Back pain [Recovering/Resolving]
